FAERS Safety Report 16445736 (Version 3)
Quarter: 2019Q3

REPORT INFORMATION
  Report Type: Spontaneous
  Country: US (occurrence: US)
  Receive Date: 20190618
  Receipt Date: 20190703
  Transmission Date: 20191004
  Serious: No
  Sender: FDA-Public Use
  Company Number: US-PFIZER INC-2019253918

PATIENT
  Age: 67 Year
  Sex: Female

DRUGS (1)
  1. ALPRAZOLAM. [Suspect]
     Active Substance: ALPRAZOLAM
     Dosage: 0.5 MG, UNK

REACTIONS (7)
  - Product colour issue [Unknown]
  - Poor quality product administered [Unknown]
  - Product taste abnormal [Unknown]
  - Suspected counterfeit product [Unknown]
  - Dry mouth [Unknown]
  - Product physical issue [Unknown]
  - Anxiety [Unknown]
